FAERS Safety Report 10665072 (Version 1)
Quarter: 2014Q4

REPORT INFORMATION
  Report Type: Spontaneous
  Country: US (occurrence: US)
  Receive Date: 20141219
  Receipt Date: 20141219
  Transmission Date: 20150529
  Serious: No
  Sender: FDA-Public Use
  Company Number: US-GLAXOSMITHKLINE-A1049078A

PATIENT

DRUGS (5)
  1. SIMVASTATIN. [Concomitant]
     Active Substance: SIMVASTATIN
  2. ACYCLOVIR. [Concomitant]
     Active Substance: ACYCLOVIR
  3. VITAMINS [Concomitant]
     Active Substance: VITAMINS
  4. BACTRIM [Concomitant]
     Active Substance: SULFAMETHOXAZOLE\TRIMETHOPRIM
  5. ARZERRA [Suspect]
     Active Substance: OFATUMUMAB
     Indication: CHRONIC LYMPHOCYTIC LEUKAEMIA
     Route: 042
     Dates: start: 201306

REACTIONS (6)
  - Paraesthesia [Not Recovered/Not Resolved]
  - Nerve injury [None]
  - Paraesthesia [None]
  - Tremor [Unknown]
  - Condition aggravated [Unknown]
  - Infusion related reaction [None]

NARRATIVE: CASE EVENT DATE: 201309
